FAERS Safety Report 20579518 (Version 1)
Quarter: 2022Q1

REPORT INFORMATION
  Report Type: Spontaneous
  Country: US (occurrence: US)
  Receive Date: 20220310
  Receipt Date: 20220310
  Transmission Date: 20220424
  Serious: Yes (Other)
  Sender: FDA-Public Use
  Company Number: US-PFIZER INC-202200355140

PATIENT
  Sex: Female

DRUGS (4)
  1. METHOTREXATE SODIUM [Interacting]
     Active Substance: METHOTREXATE SODIUM
     Dosage: UNK
     Route: 048
  2. FOLIC ACID [Interacting]
     Active Substance: FOLIC ACID
     Dosage: UNK
     Route: 065
  3. VITAMINS NOS [Interacting]
     Active Substance: VITAMINS
     Dosage: UNK
     Route: 065
  4. ENBREL [Concomitant]
     Active Substance: ETANERCEPT
     Indication: Rheumatoid arthritis
     Dosage: 25 MILLIGRAM, 2 TIMES/WK
     Route: 065
     Dates: start: 2000, end: 202107

REACTIONS (2)
  - Drug interaction [Unknown]
  - Rheumatoid arthritis [Unknown]
